FAERS Safety Report 5715581-5 (Version None)
Quarter: 2008Q2

REPORT INFORMATION
  Report Type: 
  Country: None (occurrence: None)
  Receive Date: 20080423
  Receipt Date: 20080423
  Transmission Date: 20081010
  Serious: No
  Sender: FDA-Public Use
  Company Number: None

PATIENT
  Sex: Male
  Weight: 79.3795 kg

DRUGS (1)
  1. TUBERSOL [Suspect]
     Indication: TUBERCULOSIS
     Dosage: 0.1 ML ID
     Route: 023

REACTIONS (3)
  - PARAESTHESIA [None]
  - PRURITUS [None]
  - RASH [None]
